FAERS Safety Report 4761674-9 (Version None)
Quarter: 2005Q3

REPORT INFORMATION
  Report Type: 
  Country: None (occurrence: None)
  Receive Date: 20050906
  Receipt Date: 20050609
  Transmission Date: 20060218
  Serious: Yes (Hospitalization)
  Sender: FDA-Public Use
  Company Number: US-MERCK-0506USA01468

PATIENT
  Age: 42 Year
  Sex: Female
  Weight: 66 kg

DRUGS (6)
  1. VIOXX [Suspect]
     Indication: BACK PAIN
     Route: 048
     Dates: start: 19990701, end: 20040930
  2. VIOXX [Suspect]
     Indication: NEUROPATHIC PAIN
     Route: 048
     Dates: start: 19990701, end: 20040930
  3. TYLENOL [Concomitant]
     Indication: PAIN
     Route: 065
     Dates: start: 19800101
  4. NEURONTIN [Concomitant]
     Indication: NEUROPATHY
     Route: 065
     Dates: start: 19990101
  5. SYNTHROID [Concomitant]
     Indication: THYROID DISORDER
     Route: 065
     Dates: start: 19940101
  6. DIOVAN [Concomitant]
     Indication: HYPERTENSION
     Route: 065
     Dates: start: 19940101

REACTIONS (2)
  - DYSPEPSIA [None]
  - PULMONARY EMBOLISM [None]
